FAERS Safety Report 24607503 (Version 1)
Quarter: 2024Q4

REPORT INFORMATION
  Report Type: Spontaneous
  Country: US (occurrence: US)
  Receive Date: 20241112
  Receipt Date: 20241112
  Transmission Date: 20250114
  Serious: No
  Sender: Haleon PLC
  Company Number: US-HALEON-2207964

PATIENT
  Age: 56 Year
  Sex: Male

DRUGS (1)
  1. SENSODYNE EXTRA WHITENING [Suspect]
     Active Substance: POTASSIUM NITRATE\SODIUM FLUORIDE
     Indication: Hyperaesthesia teeth
     Dosage: EXPDATE:20251130

REACTIONS (1)
  - Oral mucosal exfoliation [Not Recovered/Not Resolved]
